FAERS Safety Report 4706929-9 (Version None)
Quarter: 2005Q3

REPORT INFORMATION
  Report Type: 
  Country: None (occurrence: None)
  Receive Date: 20050701
  Receipt Date: 20050616
  Transmission Date: 20060218
  Serious: Yes (Other)
  Sender: FDA-Public Use
  Company Number: 11643

PATIENT
  Age: 60 Year
  Sex: Female

DRUGS (3)
  1. TAXOL [Suspect]
     Indication: OVARIAN CANCER
  2. TAXOL [Suspect]
     Indication: OVARIAN CANCER
  3. CARBOPLATIN [Suspect]
     Indication: OVARIAN CANCER

REACTIONS (6)
  - ABASIA [None]
  - DYSGRAPHIA [None]
  - GAIT DISTURBANCE [None]
  - IMPAIRED DRIVING ABILITY [None]
  - NEUROPATHY [None]
  - SENSORY LOSS [None]
